FAERS Safety Report 9372495 (Version 1)
Quarter: 2013Q2

REPORT INFORMATION
  Report Type: Report from Study
  Country: US (occurrence: US)
  Receive Date: 20130627
  Receipt Date: 20130627
  Transmission Date: 20140414
  Serious: Yes (Death)
  Sender: FDA-Public Use
  Company Number: US-MYLANLABS-2012S1026189

PATIENT
  Age: 48 Year
  Sex: Male
  Weight: 82.56 kg

DRUGS (9)
  1. CLOZAPINE TABLETS [Suspect]
     Route: 048
     Dates: end: 201211
  2. METOPROLOL [Concomitant]
  3. LORATADINE [Concomitant]
  4. OXYBUTYNIN [Concomitant]
  5. VITAMIN D [Concomitant]
  6. NAMENDA [Concomitant]
  7. BENZOTROPINE [Concomitant]
  8. ENALAPRIL [Concomitant]
  9. SEROQUEL XR [Concomitant]

REACTIONS (1)
  - Death [Fatal]
